FAERS Safety Report 5845116-8 (Version None)
Quarter: 2008Q3

REPORT INFORMATION
  Report Type: 
  Country: None (occurrence: None)
  Receive Date: 20080814
  Receipt Date: 20080805
  Transmission Date: 20090109
  Serious: Yes (Other)
  Sender: FDA-Public Use
  Company Number: B0531676A

PATIENT
  Sex: Female

DRUGS (1)
  1. NIQUITIN CQ 4MG LOZENGE [Suspect]
     Route: 002

REACTIONS (6)
  - ABDOMINAL PAIN UPPER [None]
  - DEPENDENCE [None]
  - FEELING JITTERY [None]
  - FLATULENCE [None]
  - INSOMNIA [None]
  - NICOTINE DEPENDENCE [None]
